FAERS Safety Report 7466012-9 (Version None)
Quarter: 2011Q2

REPORT INFORMATION
  Report Type: 
  Country: None (occurrence: None)
  Receive Date: 20110509
  Receipt Date: 20100604
  Transmission Date: 20111010
  Serious: No
  Sender: FDA-Public Use
  Company Number: US-ALEXION-A201000646

PATIENT
  Sex: Female

DRUGS (7)
  1. SOLIRIS [Suspect]
     Dosage: 900 MG, Q2W
     Route: 042
     Dates: start: 20100604
  2. TYLENOL (CAPLET) [Concomitant]
     Indication: PREMEDICATION
     Dosage: 650 MG, SINGLE
     Route: 048
     Dates: start: 20100604
  3. ASPIRIN [Concomitant]
     Dosage: 81 MG, QD
     Route: 048
  4. BENADRYL [Concomitant]
     Indication: PREMEDICATION
     Dosage: 25 MG, SINGLE
     Route: 048
     Dates: start: 20100604
  5. FOLATE [Concomitant]
     Dosage: 1 MG, QD
     Route: 048
  6. SOLIRIS [Suspect]
     Indication: PAROXYSMAL NOCTURNAL HAEMOGLOBINURIA
     Dosage: 600 MG, QW
     Route: 042
     Dates: start: 20100506, end: 20100527
  7. STOOL SOFTENER [Concomitant]
     Dosage: UNK
     Route: 048

REACTIONS (1)
  - ABDOMINAL PAIN LOWER [None]
